FAERS Safety Report 5223897-4 (Version None)
Quarter: 2007Q1

REPORT INFORMATION
  Report Type: 
  Country: None (occurrence: None)
  Receive Date: 20070130
  Receipt Date: 20070122
  Transmission Date: 20070707
  Serious: No
  Sender: FDA-Public Use
  Company Number: 2007UW01634

PATIENT
  Age: 71 Year
  Sex: Male

DRUGS (3)
  1. PULMICORT [Suspect]
     Indication: ASTHMA
     Dosage: 200 TO 400 MG DAILY
     Route: 055
     Dates: start: 20010101
  2. ALTACE [Concomitant]
  3. SIMVASTATIN [Concomitant]

REACTIONS (3)
  - DEVICE MALFUNCTION [None]
  - DYSPNOEA [None]
  - PHARMACEUTICAL PRODUCT COMPLAINT [None]
